FAERS Safety Report 7683485-7 (Version None)
Quarter: 2011Q3

REPORT INFORMATION
  Report Type: 
  Country: None (occurrence: None)
  Receive Date: 20110815
  Receipt Date: 20110808
  Transmission Date: 20111222
  Serious: Yes (Other)
  Sender: FDA-Public Use
  Company Number: US-CEPHALON-US017377

PATIENT
  Sex: Male
  Weight: 68 kg

DRUGS (2)
  1. LEXAPRO [Concomitant]
     Indication: DYSTHYMIC DISORDER
     Route: 065
     Dates: start: 20021101
  2. PROVIGIL [Suspect]
     Indication: CIRCADIAN RHYTHM SLEEP DISORDER
     Route: 048
     Dates: start: 20051102, end: 20060421

REACTIONS (1)
  - CATARACT [None]
